FAERS Safety Report 10923087 (Version 2)
Quarter: 2015Q1

REPORT INFORMATION
  Report Type: Spontaneous
  Country: US (occurrence: US)
  Receive Date: 20150317
  Receipt Date: 20150318
  Transmission Date: 20150721
  Serious: Yes (Death, Hospitalization)
  Sender: FDA-Public Use
  Company Number: US-ELI_LILLY_AND_COMPANY-US90080670A

PATIENT
  Age: 30 Year
  Sex: Male

DRUGS (2)
  1. REGLAN [Interacting]
     Active Substance: METOCLOPRAMIDE HYDROCHLORIDE
  2. PROZAC [Suspect]
     Active Substance: FLUOXETINE HYDROCHLORIDE
     Indication: DEPRESSION
     Dosage: 20 MG, DAILY (1/D)
     Route: 048

REACTIONS (11)
  - Aggression [Unknown]
  - Suicidal ideation [Unknown]
  - Suicide attempt [Fatal]
  - Akathisia [Unknown]
  - Paraesthesia [Unknown]
  - Withdrawal syndrome [Unknown]
  - Drug interaction [Unknown]
  - Anxiety [Unknown]
  - Palpitations [Unknown]
  - Agitation [Unknown]
  - Depression [Unknown]
